FAERS Safety Report 9981619 (Version 1)
Quarter: 2014Q1

REPORT INFORMATION
  Report Type: Report from Study
  Country: US (occurrence: US)
  Receive Date: 20140307
  Receipt Date: 20140307
  Transmission Date: 20141002
  Serious: No
  Sender: FDA-Public Use
  Company Number: US-ABBVIE-13P-163-1179856-00

PATIENT
  Age: 59 Year
  Sex: Female
  Weight: 78.09 kg

DRUGS (6)
  1. HUMIRA [Suspect]
     Indication: CROHN^S DISEASE
     Route: 058
     Dates: start: 20121025
  2. ENTOCORT [Suspect]
  3. PENTASA [Concomitant]
     Indication: PRODUCT USED FOR UNKNOWN INDICATION
  4. FOLIC ACID [Concomitant]
     Indication: PRODUCT USED FOR UNKNOWN INDICATION
  5. ZANTAC [Concomitant]
     Indication: PRODUCT USED FOR UNKNOWN INDICATION
  6. VAGIFEM [Concomitant]
     Indication: MENOPAUSE

REACTIONS (4)
  - Hot flush [Unknown]
  - Oedema peripheral [Recovering/Resolving]
  - Blood pressure increased [Recovered/Resolved]
  - Crohn^s disease [Recovered/Resolved]
